FAERS Safety Report 4543104-5 (Version None)
Quarter: 2004Q4

REPORT INFORMATION
  Report Type: 
  Country: None (occurrence: None)
  Receive Date: 20041229
  Receipt Date: 20041222
  Transmission Date: 20050328
  Serious: Yes (Death, Hospitalization)
  Sender: FDA-Public Use
  Company Number: D01200405637

PATIENT
  Age: 82 Year
  Sex: Female

DRUGS (9)
  1. CLOPIDOGREL - TABLET - 75 MG [Suspect]
     Indication: ANGIOPATHY
     Dosage: 75 MG QD, ORAL
     Route: 048
     Dates: start: 20040521
  2. CLOPIDOGREL - TABLET - 75 MG [Suspect]
     Indication: PROPHYLAXIS
     Dosage: 75 MG QD, ORAL
     Route: 048
     Dates: start: 20040521
  3. IRBESARTAN [Suspect]
     Indication: ANGIOPATHY
     Dosage: 150 MG/DAY FOR 2 WEEKS FOLLOWING BY 300 MG/DAY ORAL
     Route: 048
     Dates: start: 20040521
  4. IRBESARTAN [Suspect]
     Indication: PROPHYLAXIS
     Dosage: 150 MG/DAY FOR 2 WEEKS FOLLOWING BY 300 MG/DAY ORAL
     Route: 048
     Dates: start: 20040521
  5. PLACEBO - TABLET - 75 MG [Suspect]
     Indication: ANGIOPATHY
     Dosage: 75 MG QD, ORAL
     Route: 048
     Dates: start: 20040521
  6. PLACEBO - TABLET - 75 MG [Suspect]
     Indication: PROPHYLAXIS
     Dosage: 75 MG QD, ORAL
     Route: 048
     Dates: start: 20040521
  7. PLACEBO - TABLET - 150 MG [Suspect]
     Indication: ANGIOPATHY
     Dosage: 150 MG/DAY FOR 2 WEEKS FOLLOWING BY 300 MG/DAY OAL
     Route: 048
     Dates: start: 20040521
  8. PLACEBO - TABLET - 150 MG [Suspect]
     Indication: PROPHYLAXIS
     Dosage: 150 MG/DAY FOR 2 WEEKS FOLLOWING BY 300 MG/DAY OAL
     Route: 048
     Dates: start: 20040521
  9. ACETYLSALICYLIC ACID SRT [Concomitant]

REACTIONS (1)
  - HAEMORRHAGIC STROKE [None]
